FAERS Safety Report 8839997 (Version 3)
Quarter: 2013Q1

REPORT INFORMATION
  Report Type: Spontaneous
  Country: US (occurrence: US)
  Receive Date: 20121015
  Receipt Date: 20130227
  Transmission Date: 20140127
  Serious: No
  Sender: FDA-Public Use
  Company Number: US-PFIZER INC-2012252883

PATIENT
  Age: 64 Year
  Sex: Female
  Weight: 83.9 kg

DRUGS (3)
  1. NORVASC [Suspect]
     Indication: HYPERTENSION
     Dosage: 10 MG, DAILY
  2. LIPITOR [Suspect]
     Indication: BLOOD CHOLESTEROL INCREASED
     Dosage: 40 MG, DAILY
  3. ACCUPRIL [Suspect]
     Indication: HYPERTENSION
     Dosage: 40 MG, DAILY

REACTIONS (4)
  - Blood pressure abnormal [Unknown]
  - Asthma [Recovered/Resolved]
  - Dyspnoea [Unknown]
  - Stress [Recovered/Resolved]
